FAERS Safety Report 9439961 (Version 1)
Quarter: 2013Q3

REPORT INFORMATION
  Report Type: Spontaneous
  Country: US (occurrence: US)
  Receive Date: 20130805
  Receipt Date: 20130805
  Transmission Date: 20140515
  Serious: No
  Sender: FDA-Public Use
  Company Number: US-ELI_LILLY_AND_COMPANY-US201307011083

PATIENT
  Age: 59 Year
  Sex: Male

DRUGS (1)
  1. CIALIS [Suspect]
     Indication: ERECTILE DYSFUNCTION
     Dosage: 20 MG, PRN
     Dates: start: 20130727

REACTIONS (5)
  - Vision blurred [Recovered/Resolved]
  - Insomnia [Unknown]
  - Nasal congestion [Recovered/Resolved]
  - Back pain [Not Recovered/Not Resolved]
  - Wrong technique in drug usage process [Unknown]
